FAERS Safety Report 6330076-6 (Version None)
Quarter: 2009Q3

REPORT INFORMATION
  Report Type: 
  Country: None (occurrence: None)
  Receive Date: 20090827
  Receipt Date: 20070913
  Transmission Date: 20100115
  Serious: Yes (Hospitalization, Other)
  Sender: FDA-Public Use
  Company Number: US-ASTRAZENECA-2006UW08443

PATIENT
  Age: 514 Month
  Sex: Female
  Weight: 142.4 kg

DRUGS (13)
  1. SEROQUEL [Suspect]
     Indication: BIPOLAR DISORDER
     Route: 048
     Dates: start: 20000101, end: 20050302
  2. SEROQUEL [Suspect]
     Indication: SCHIZOPHRENIA
     Route: 048
     Dates: start: 20000101, end: 20050302
  3. SEROQUEL [Suspect]
     Dosage: 600 MG TO 900 MG
     Route: 048
     Dates: start: 20011205, end: 20050302
  4. SEROQUEL [Suspect]
     Dosage: 600 MG TO 900 MG
     Route: 048
     Dates: start: 20011205, end: 20050302
  5. RISPERIDONE [Concomitant]
     Dates: start: 20050101
  6. LITHIUM CARBONATE [Concomitant]
     Dates: start: 20020712, end: 20050128
  7. WELLBUTRIN XL [Concomitant]
     Dates: start: 20011205
  8. LAMICTAL [Concomitant]
     Dosage: 20 MG TO 200 MG
     Dates: start: 20041222
  9. KLONOPIN [Concomitant]
     Dates: start: 20020702
  10. DIOVAN HCT [Concomitant]
     Dosage: 80/ 12.5 MG ONE DAILY
     Dates: start: 20011205
  11. LASIX [Concomitant]
     Dates: start: 20011205
  12. TEGRETOL [Concomitant]
     Dosage: 200 TID
     Route: 048
     Dates: start: 20011205
  13. INDERAL [Concomitant]
     Dates: start: 20020908, end: 20050128

REACTIONS (7)
  - BLOOD CHOLESTEROL INCREASED [None]
  - DIABETES MELLITUS [None]
  - DIABETES MELLITUS INADEQUATE CONTROL [None]
  - DIABETIC COMA [None]
  - DIABETIC KETOACIDOSIS [None]
  - NEUROPATHY PERIPHERAL [None]
  - TYPE 2 DIABETES MELLITUS [None]
